FAERS Safety Report 12858712 (Version 2)
Quarter: 2016Q4

REPORT INFORMATION
  Report Type: Spontaneous
  Country: US (occurrence: US)
  Receive Date: 20161018
  Receipt Date: 20161031
  Transmission Date: 20170207
  Serious: Yes (Other)
  Sender: FDA-Public Use
  Company Number: US-NOVOPROD-508982

PATIENT
  Age: 47 Year
  Sex: Male
  Weight: 160.6 kg

DRUGS (2)
  1. METFORMIN [Concomitant]
     Active Substance: METFORMIN HYDROCHLORIDE
     Indication: PRODUCT USED FOR UNKNOWN INDICATION
     Dosage: 500 MG, TID
     Dates: start: 2010
  2. TRESIBA FLEXTOUCH U200 [Suspect]
     Active Substance: INSULIN DEGLUDEC
     Indication: DIABETES MELLITUS INADEQUATE CONTROL
     Dosage: 105 U, QD AT BEDTIME
     Route: 058
     Dates: start: 20160804, end: 20160827

REACTIONS (2)
  - Accident [Recovered/Resolved]
  - Blood glucose decreased [Recovered/Resolved]

NARRATIVE: CASE EVENT DATE: 20160827
